FAERS Safety Report 6577083-6 (Version None)
Quarter: 2010Q1

REPORT INFORMATION
  Report Type: 
  Country: None (occurrence: None)
  Receive Date: 20100210
  Receipt Date: 20100202
  Transmission Date: 20100710
  Serious: Yes (Hospitalization)
  Sender: FDA-Public Use
  Company Number: FR-SANOFI-AVENTIS-2010SA006252

PATIENT
  Age: 67 Year
  Sex: Male

DRUGS (19)
  1. KETOPROFEN [Suspect]
     Route: 048
     Dates: start: 20091120, end: 20091126
  2. LASILIX [Suspect]
     Route: 048
     Dates: end: 20091120
  3. LASILIX [Suspect]
     Route: 048
     Dates: start: 20091121, end: 20091129
  4. NEXIUM /UNK/ [Suspect]
     Route: 048
     Dates: start: 20091120, end: 20091126
  5. APROVEL [Suspect]
     Route: 048
     Dates: start: 20091124, end: 20091124
  6. HYZAAR [Suspect]
     Route: 048
     Dates: end: 20091124
  7. AMLOR [Concomitant]
     Route: 048
  8. KARDEGIC [Concomitant]
     Route: 048
  9. ATENOLOL [Concomitant]
     Route: 048
  10. CRESTOR [Concomitant]
     Route: 048
  11. AVANDIA [Concomitant]
     Route: 048
  12. ALLOPURINOL [Concomitant]
     Route: 048
  13. PERMIXON [Concomitant]
     Route: 048
  14. LEXOMIL [Concomitant]
     Route: 048
  15. TOPALGIC [Concomitant]
     Route: 048
  16. DIFFU K [Concomitant]
     Route: 048
  17. INSULIN DETEMIR [Concomitant]
     Route: 058
  18. EDUCTYL [Concomitant]
     Route: 054
  19. FORLAX [Concomitant]
     Route: 048

REACTIONS (1)
  - RENAL FAILURE ACUTE [None]
